FAERS Safety Report 23716400 (Version 2)
Quarter: 2025Q1

REPORT INFORMATION
  Report Type: Report from Study
  Country: DE (occurrence: DE)
  Receive Date: 20240408
  Receipt Date: 20250131
  Transmission Date: 20250409
  Serious: Yes (Other)
  Sender: ROCHE
  Company Number: DE-ROCHE-3090241

PATIENT
  Age: 49 Year
  Sex: Female

DRUGS (4)
  1. OCREVUS [Suspect]
     Active Substance: OCRELIZUMAB
     Indication: Secondary progressive multiple sclerosis
     Dosage: 600 MG FREQUENCY: 182 DAYS
     Route: 040
     Dates: start: 20180705
  2. DALFAMPRIDINE [Concomitant]
     Active Substance: DALFAMPRIDINE
  3. BACLOFEN [Concomitant]
     Active Substance: BACLOFEN
     Dosage: 1-1-1
  4. BISOPROLOL [Concomitant]
     Active Substance: BISOPROLOL

REACTIONS (13)
  - Off label use [Unknown]
  - Erythema [Recovered/Resolved]
  - Fatigue [Recovered/Resolved]
  - Abdominal pain upper [Recovered/Resolved]
  - Radius fracture [Recovered/Resolved]
  - Hypoaesthesia [Recovered/Resolved]
  - Pain in extremity [Recovered/Resolved]
  - Middle insomnia [Not Recovered/Not Resolved]
  - Joint swelling [Recovered/Resolved]
  - Fall [Unknown]
  - Contusion [Recovered/Resolved]
  - COVID-19 [Recovered/Resolved]
  - Bone contusion [Recovered/Resolved]

NARRATIVE: CASE EVENT DATE: 20180705
